FAERS Safety Report 7605326-6 (Version None)
Quarter: 2011Q3

REPORT INFORMATION
  Report Type: 
  Country: None (occurrence: None)
  Receive Date: 20110705
  Receipt Date: 20110622
  Transmission Date: 20111222
  Serious: Yes (Hospitalization)
  Sender: FDA-Public Use
  Company Number: 1000021826

PATIENT
  Age: 78 Year
  Sex: Male

DRUGS (11)
  1. COKENSEN (CARDESARTAN CILEXETIL, HYDROCHLOROTHIAZIDE) (CANDESARTAN CIL [Concomitant]
  2. METFORMINE (METFORMIN HYDROCHLORIDE) (METFORMIN HYDROCHLORIDE) [Concomitant]
  3. KARDEGIC (ACETYLSALICYLATE LYSINE) (ACETYLSALICYLATE LYSINE) [Concomitant]
  4. SINGULAIR (MONTELUKAST) (MONTELUKAST) [Concomitant]
  5. DESLORATADINE [Concomitant]
  6. SERETIDE (FLUTICASONE, SALMETEROL) (FLUTICASONE, SALMETEROL) [Concomitant]
  7. MEMANTINE HYDROCHLORIDE [Suspect]
     Indication: DEMENTIA ALZHEIMER'S TYPE
     Dates: start: 20110201, end: 20110514
  8. INEXIUM (ESOMEPRAZOLE) (ESOMEPRAZOLE) [Concomitant]
  9. ATORVASTATIN CALCIUM [Concomitant]
  10. AMAREL (GLIMEPIRIDE) (GLIMEPIRIDE) [Concomitant]
  11. PREVISCAN (FLUINDIONE) (FLUINDIONE) [Concomitant]

REACTIONS (2)
  - PRURITUS [None]
  - DERMATITIS PSORIASIFORM [None]
